FAERS Safety Report 5424022-7 (Version None)
Quarter: 2007Q3

REPORT INFORMATION
  Report Type: 
  Country: None (occurrence: None)
  Receive Date: 20070823
  Receipt Date: 20070813
  Transmission Date: 20080115
  Serious: Yes (Hospitalization)
  Sender: FDA-Public Use
  Company Number: BR-PFIZER INC-2006083924

PATIENT
  Sex: Female
  Weight: 57 kg

DRUGS (2)
  1. DEPO-PROVERA SUSPENSION/INJ [Suspect]
     Indication: CONTRACEPTION
     Route: 030
     Dates: start: 20060516, end: 20060516
  2. ANCORON [Concomitant]
     Route: 048

REACTIONS (6)
  - BACK PAIN [None]
  - INAPPROPRIATE SCHEDULE OF DRUG ADMINISTRATION [None]
  - INTERVERTEBRAL DISC PROTRUSION [None]
  - LUMBAR RADICULOPATHY [None]
  - MENSTRUATION IRREGULAR [None]
  - METRORRHAGIA [None]
